FAERS Safety Report 15789445 (Version 1)
Quarter: 2019Q1

REPORT INFORMATION
  Report Type: Report from Study
  Country: DE (occurrence: DE)
  Receive Date: 20190104
  Receipt Date: 20190104
  Transmission Date: 20190417
  Serious: Yes (Other)
  Sender: FDA-Public Use
  Company Number: DE-TEVA-2018-DE-988706

PATIENT
  Age: 57 Year
  Sex: Male

DRUGS (1)
  1. COPAXONE [Suspect]
     Active Substance: GLATIRAMER ACETATE
     Indication: MULTIPLE SCLEROSIS
     Dates: start: 20171027

REACTIONS (8)
  - Chest discomfort [Recovered/Resolved]
  - Flushing [Recovered/Resolved]
  - Injection site pustule [Recovered/Resolved]
  - Injection site pruritus [Recovered/Resolved]
  - Agitation [Unknown]
  - Anaphylactic shock [Recovered/Resolved]
  - Dyspnoea [Recovered/Resolved]
  - Injection site urticaria [Recovered/Resolved]

NARRATIVE: CASE EVENT DATE: 20181224
